FAERS Safety Report 19284191 (Version 3)
Quarter: 2021Q2

REPORT INFORMATION
  Report Type: Spontaneous
  Country: US (occurrence: US)
  Receive Date: 20210521
  Receipt Date: 20210528
  Transmission Date: 20210717
  Serious: Yes (Other)
  Sender: FDA-Public Use
  Company Number: US-EMCURE PHARMACEUTICALS LTD-2021-EPL-001637

PATIENT

DRUGS (1)
  1. DOXYCYCLINE. [Suspect]
     Active Substance: DOXYCYCLINE
     Indication: BACTERIAL INFECTION
     Dosage: UNK MILLIGRAM
     Route: 048
     Dates: start: 20210505, end: 20210505

REACTIONS (2)
  - Facial paralysis [Not Recovered/Not Resolved]
  - Bell^s palsy [Recovering/Resolving]

NARRATIVE: CASE EVENT DATE: 20210505
